FAERS Safety Report 10234741 (Version 1)
Quarter: 2014Q2

REPORT INFORMATION
  Report Type: Spontaneous
  Country: US (occurrence: US)
  Receive Date: 20140613
  Receipt Date: 20140613
  Transmission Date: 20141212
  Serious: No
  Sender: FDA-Public Use
  Company Number: US-SHIRE-US201402886

PATIENT
  Sex: Male

DRUGS (2)
  1. LIALDA [Suspect]
     Indication: PRODUCT USED FOR UNKNOWN INDICATION
     Dosage: 4.8 G,(4 TABLETS) 1X/DAY:QD
     Route: 065
     Dates: start: 201405
  2. LIALDA [Suspect]
     Dosage: 2.4 G,(2 TABLETS) 1X/DAY:QD
     Route: 065

REACTIONS (2)
  - Drug effect increased [Unknown]
  - Fatigue [Unknown]
